FAERS Safety Report 5031737-1 (Version None)
Quarter: 2006Q2

REPORT INFORMATION
  Report Type: 
  Country: None (occurrence: None)
  Receive Date: 20060616
  Receipt Date: 20060614
  Transmission Date: 20061013
  Serious: Yes (Death)
  Sender: FDA-Public Use
  Company Number: S06-USA-02204-01

PATIENT
  Age: 22 Year
  Sex: Male

DRUGS (2)
  1. LEXAPRO [Suspect]
     Indication: SOCIAL PHOBIA
     Dosage: 20 MG QD PO
     Route: 048
     Dates: start: 20060321, end: 20060501
  2. LEXAPRO [Suspect]
     Indication: SOCIAL PHOBIA
     Dosage: 10 MG QD PO
     Route: 048
     Dates: start: 20060203, end: 20060320

REACTIONS (2)
  - COMPLETED SUICIDE [None]
  - GUN SHOT WOUND [None]
